FAERS Safety Report 9222799 (Version 2)
Quarter: 2013Q2

REPORT INFORMATION
  Report Type: Spontaneous
  Country: US (occurrence: US)
  Receive Date: 20130410
  Receipt Date: 20130506
  Transmission Date: 20140414
  Serious: Yes (Death, Life-Threatening, Other)
  Sender: FDA-Public Use
  Company Number: US-ROCHE-1209739

PATIENT
  Age: 55 Year
  Sex: Female

DRUGS (2)
  1. T-PA [Suspect]
     Indication: EMBOLIC STROKE
     Route: 042
  2. T-PA [Suspect]
     Indication: ACUTE MYOCARDIAL INFARCTION

REACTIONS (4)
  - Cardiac arrest [Fatal]
  - Condition aggravated [Fatal]
  - Ventricular fibrillation [Unknown]
  - Hypotension [Not Recovered/Not Resolved]
